FAERS Safety Report 11794478 (Version 5)
Quarter: 2016Q2

REPORT INFORMATION
  Report Type: Spontaneous
  Country: US (occurrence: US)
  Receive Date: 20151202
  Receipt Date: 20160419
  Transmission Date: 20160815
  Serious: Yes (Other)
  Sender: FDA-Public Use
  Company Number: US-HORIZON-ACT-0207-2015

PATIENT
  Age: 30 Year
  Sex: Male

DRUGS (5)
  1. LISINOPRIL. [Concomitant]
     Active Substance: LISINOPRIL
  2. PROCONAZOLE [Concomitant]
  3. ACTIMMUNE [Suspect]
     Active Substance: INTERFERON GAMMA-1B
     Indication: CHRONIC GRANULOMATOUS DISEASE
     Dosage: 100 MCG THREE TIMES WEEKLY
  4. SEPTRA [Concomitant]
     Active Substance: SULFAMETHOXAZOLE\TRIMETHOPRIM
  5. POSACONAZOLE [Concomitant]
     Active Substance: POSACONAZOLE

REACTIONS (6)
  - Influenza like illness [Recovered/Resolved]
  - Headache [Recovered/Resolved]
  - Protein total increased [Recovered/Resolved]
  - Pulmonary fibrosis [Not Recovered/Not Resolved]
  - Blood creatinine increased [Recovered/Resolved]
  - Chills [Recovered/Resolved]

NARRATIVE: CASE EVENT DATE: 20160223
